FAERS Safety Report 25203116 (Version 3)
Quarter: 2025Q3

REPORT INFORMATION
  Report Type: Report from Study
  Country: US (occurrence: US)
  Receive Date: 20250416
  Receipt Date: 20250708
  Transmission Date: 20251021
  Serious: Yes (Other)
  Sender: UCB
  Company Number: US-UCBSA-2025021989

PATIENT
  Sex: Female

DRUGS (1)
  1. ROTIGOTINE [Suspect]
     Active Substance: ROTIGOTINE
     Indication: Parkinson^s disease
     Dosage: 3 MILLIGRAM, ONCE DAILY (QD)
     Route: 062

REACTIONS (5)
  - Cardiac failure [Unknown]
  - Dizziness [Unknown]
  - Fluid imbalance [Unknown]
  - General physical health deterioration [Unknown]
  - Hypotension [Unknown]
